FAERS Safety Report 8949071 (Version 1)
Quarter: 2012Q4

REPORT INFORMATION
  Report Type: Report from Study
  Country: KR (occurrence: KR)
  Receive Date: 20121206
  Receipt Date: 20121206
  Transmission Date: 20130627
  Serious: Yes (Hospitalization)
  Sender: FDA-Public Use
  Company Number: KR-SANOFI-AVENTIS-2012SA087732

PATIENT
  Age: 36 Year
  Sex: Female
  Weight: 61 kg

DRUGS (7)
  1. DOCETAXEL [Suspect]
     Indication: HER-2 POSITIVE BREAST CANCER
     Dosage: dose level- 75mg/m2(128mg)
form - vial
     Route: 042
     Dates: start: 20090916
  2. DOCETAXEL [Suspect]
     Indication: HER-2 POSITIVE BREAST CANCER
     Dosage: dose level- 75mg/m2 ; last dose prior to adverse event: 2cycle(117mg)
form - vial
     Route: 042
  3. TRASTUZUMAB [Suspect]
     Indication: HER-2 POSITIVE BREAST CANCER
     Dosage: dose level - 8mg/kg (490mg)
form- vial
     Route: 042
     Dates: start: 20090916
  4. TRASTUZUMAB [Suspect]
     Indication: HER-2 POSITIVE BREAST CANCER
     Dosage: dose level - 8mg/kg , last dose prior to event: 2 cycle(430mg)
form- vial
     Route: 042
  5. CARBOPLATIN [Suspect]
     Indication: HER-2 POSITIVE BREAST CANCER
     Dosage: dose level : 6 AUC (900mg)
form - vial
     Route: 042
     Dates: start: 20090916
  6. CARBOPLATIN [Suspect]
     Indication: HER-2 POSITIVE BREAST CANCER
     Dosage: dose level : 6 AUC, last dose prior to event :760mg
form - vial
     Route: 042
  7. CARBOPLATIN [Suspect]
     Indication: HER-2 POSITIVE BREAST CANCER
     Dosage: dose level : 6AUC, last dose prior to event:2 cycles(640mg)
     Route: 042

REACTIONS (2)
  - Febrile neutropenia [Recovered/Resolved]
  - Insomnia [Recovered/Resolved]
